FAERS Safety Report 13357652 (Version 2)
Quarter: 2017Q1

REPORT INFORMATION
  Report Type: Spontaneous
  Country: DE (occurrence: DE)
  Receive Date: 20170322
  Receipt Date: 20170323
  Transmission Date: 20170429
  Serious: Yes (Hospitalization)
  Sender: FDA-Public Use
  Company Number: DE-ROCHE-1909683

PATIENT
  Age: 71 Year
  Sex: Female

DRUGS (3)
  1. KADCYLA [Suspect]
     Active Substance: ADO-TRASTUZUMAB EMTANSINE
     Indication: PRODUCT USED FOR UNKNOWN INDICATION
     Route: 065
     Dates: start: 20170315
  2. DEXAMETHASON [Concomitant]
     Active Substance: DEXAMETHASONE
     Route: 065
  3. DEXAMETHASON [Concomitant]
     Active Substance: DEXAMETHASONE
     Route: 065

REACTIONS (3)
  - Nervous system disorder [Unknown]
  - Off label use [Unknown]
  - Fatigue [Unknown]

NARRATIVE: CASE EVENT DATE: 20170317
